FAERS Safety Report 11337084 (Version 1)
Quarter: 2015Q3

REPORT INFORMATION
  Report Type: Spontaneous
  Country: CN (occurrence: CN)
  Receive Date: 20150804
  Receipt Date: 20150804
  Transmission Date: 20151125
  Serious: Yes (Other)
  Sender: FDA-Public Use
  Company Number: CN-PFIZER INC-2015231758

PATIENT
  Age: 73 Year
  Sex: Female
  Weight: 65 kg

DRUGS (3)
  1. PULMICORT TURBUHALER [Suspect]
     Active Substance: BUDESONIDE
     Indication: ASTHMA
     Dosage: 2 ML, 2X/DAY
     Route: 055
     Dates: start: 20141205, end: 20141210
  2. SOLU-MEDROL [Suspect]
     Active Substance: METHYLPREDNISOLONE SODIUM SUCCINATE
     Indication: ASTHMA
     Dosage: 40 MG, 1X/DAY
     Route: 042
     Dates: start: 20141206, end: 20141206
  3. PULMICORT TURBUHALER [Suspect]
     Active Substance: BUDESONIDE
     Dosage: 4 ML, 2X/DAY, EXTERNAL USE
     Dates: start: 20141210, end: 20141212

REACTIONS (2)
  - Cholecystitis [Recovered/Resolved]
  - Gallbladder pain [Recovered/Resolved]

NARRATIVE: CASE EVENT DATE: 20141206
